FAERS Safety Report 23864884 (Version 3)
Quarter: 2025Q4

REPORT INFORMATION
  Report Type: Report from Study
  Country: US (occurrence: US)
  Receive Date: 20240516
  Receipt Date: 20251224
  Transmission Date: 20260117
  Serious: Yes (Death, Other)
  Sender: JOHNSON AND JOHNSON
  Company Number: US-JNJFOC-20240522449

PATIENT
  Age: 65 Year
  Sex: Male

DRUGS (3)
  1. CILTACABTAGENE AUTOLEUCEL [Suspect]
     Active Substance: CILTACABTAGENE AUTOLEUCEL
     Indication: Plasma cell myeloma
     Dosage: THE ENTIRE VOLUME OF PRODUCT WAS INFUSED. TOTAL NUMBER OF CELLS ADMINISTERED WAS 0.7. TOTAL CELLS EXPONENT VALUE WAS 8.
  2. CYCLOPHOSPHAMIDE [Concomitant]
     Active Substance: CYCLOPHOSPHAMIDE
     Indication: Lymphodepletion
  3. FLUDARABINE [Concomitant]
     Active Substance: FLUDARABINE PHOSPHATE
     Indication: Lymphodepletion

REACTIONS (4)
  - Neoplasm malignant [Fatal]
  - Plasma cell myeloma [Fatal]
  - Ocular surface squamous neoplasia [Unknown]
  - Myelodysplastic syndrome [Unknown]

NARRATIVE: CASE EVENT DATE: 20231003
